FAERS Safety Report 24913782 (Version 1)
Quarter: 2025Q1

REPORT INFORMATION
  Report Type: Spontaneous
  Country: US (occurrence: US)
  Receive Date: 20250202
  Receipt Date: 20250202
  Transmission Date: 20250409
  Serious: No
  Sender: SANOFI AVENTIS
  Company Number: US-SA-2025SA029551

PATIENT
  Sex: Female
  Weight: 65.91 kg

DRUGS (9)
  1. DUPIXENT [Suspect]
     Active Substance: DUPILUMAB
     Indication: Product used for unknown indication
     Dosage: 300 MG, QOW
     Route: 058
  2. BUDESONIDE [Concomitant]
     Active Substance: BUDESONIDE
  3. MOMETASONE FUROATE [Concomitant]
     Active Substance: MOMETASONE FUROATE
  4. TRELEGY ELLIPTA [Concomitant]
     Active Substance: FLUTICASONE FUROATE\UMECLIDINIUM BROMIDE\VILANTEROL TRIFENATATE
  5. XDEMVY [Concomitant]
     Active Substance: LOTILANER
  6. METRONIDAZOLE [Concomitant]
     Active Substance: METRONIDAZOLE
  7. METHYLPREDNISOLONE [Concomitant]
     Active Substance: METHYLPREDNISOLONE
  8. AMOXICILLIN\CLAVULANATE POTASSIUM [Concomitant]
     Active Substance: AMOXICILLIN\CLAVULANATE POTASSIUM
  9. ALBUTEROL SULFATE [Concomitant]
     Active Substance: ALBUTEROL SULFATE

REACTIONS (2)
  - Photophobia [Unknown]
  - Eye haemorrhage [Unknown]
